FAERS Safety Report 17432403 (Version 1)
Quarter: 2020Q1

REPORT INFORMATION
  Report Type: Spontaneous
  Country: US (occurrence: US)
  Receive Date: 20200218
  Receipt Date: 20200218
  Transmission Date: 20200409
  Serious: No
  Sender: FDA-Public Use
  Company Number: US-SA-2020SA035086

PATIENT
  Age: 7 Year
  Sex: Female
  Weight: 20 kg

DRUGS (1)
  1. DUPIXENT [Suspect]
     Active Substance: DUPILUMAB
     Dosage: 200 MG
     Route: 058
     Dates: start: 202002

REACTIONS (1)
  - Off label use [Unknown]

NARRATIVE: CASE EVENT DATE: 202002
